FAERS Safety Report 5203020-2 (Version None)
Quarter: 2006Q4

REPORT INFORMATION
  Report Type: 
  Country: None (occurrence: None)
  Receive Date: 20061016
  Receipt Date: 20060713
  Transmission Date: 20070319
  Serious: Yes (Other)
  Sender: FDA-Public Use
  Company Number: 2006065757

PATIENT
  Sex: Male
  Weight: 108.8633 kg

DRUGS (2)
  1. NEURONTIN [Suspect]
     Indication: NEURALGIA
  2. LYRICA [Suspect]
     Indication: NEURALGIA
     Dosage: 150 MG (50 MG, 3 IN 1 D)

REACTIONS (6)
  - DISCOMFORT [None]
  - DRUG EFFECT DECREASED [None]
  - FEELING ABNORMAL [None]
  - NEURALGIA [None]
  - VISION BLURRED [None]
  - WEIGHT INCREASED [None]
